FAERS Safety Report 8460704 (Version 3)
Quarter: 2013Q2

REPORT INFORMATION
  Report Type: Report from Study
  Country: CA (occurrence: CA)
  Receive Date: 20120315
  Receipt Date: 20130411
  Transmission Date: 20140414
  Serious: Yes (Hospitalization)
  Sender: FDA-Public Use
  Company Number: CA-JNJFOC-20110811298

PATIENT
  Age: 63 Year
  Sex: Male

DRUGS (25)
  1. ABIRATERONE ACETATE [Suspect]
     Route: 048
  2. ABIRATERONE ACETATE [Suspect]
     Indication: PROSTATE CANCER METASTATIC
     Route: 048
     Dates: start: 20100120, end: 20110824
  3. PREDNISONE [Suspect]
     Indication: PROSTATE CANCER METASTATIC
     Route: 048
     Dates: start: 20100120, end: 20110830
  4. ADALAT XL [Concomitant]
     Indication: HYPERTENSION
     Route: 048
     Dates: start: 20110822
  5. ZOLADEX [Concomitant]
     Indication: PROSTATE CANCER
     Route: 058
     Dates: start: 200906
  6. ZOLADEX [Concomitant]
     Indication: PROSTATE CANCER
     Route: 058
     Dates: start: 20100120
  7. ZOLADEX [Concomitant]
     Indication: HORMONE THERAPY
     Route: 058
     Dates: start: 200906
  8. ZOLADEX [Concomitant]
     Indication: HORMONE THERAPY
     Route: 058
     Dates: start: 20100120
  9. MULTIVITAMINS [Concomitant]
     Indication: GENERAL PHYSICAL CONDITION
     Route: 048
     Dates: start: 200901, end: 20110819
  10. CALCIUM [Concomitant]
     Indication: GENERAL PHYSICAL CONDITION
     Route: 048
     Dates: start: 20090201, end: 20110819
  11. OMEGA 3 [Concomitant]
     Indication: GENERAL PHYSICAL CONDITION
     Route: 048
     Dates: start: 200910, end: 20110819
  12. QUINAPRIL [Concomitant]
     Indication: HYPERTENSION
     Route: 048
     Dates: start: 20100111
  13. DIDROCAL [Concomitant]
     Indication: OSTEOPOROSIS
     Route: 065
     Dates: start: 20091211, end: 20110819
  14. VITAMIN D [Concomitant]
     Indication: GENERAL PHYSICAL CONDITION
     Route: 048
     Dates: start: 20100206, end: 20110819
  15. EFFEXOR XR [Concomitant]
     Indication: HOT FLUSH
     Route: 048
     Dates: start: 20101229
  16. ALEVE [Concomitant]
     Indication: ARTHRALGIA
     Route: 048
     Dates: start: 20110120, end: 20110805
  17. HYDROCHLOROTHIAZIDE [Concomitant]
     Indication: HYPERTENSION
     Route: 048
     Dates: start: 20110120, end: 20110819
  18. OSTEO BI-FLEX [Concomitant]
     Indication: ARTHRALGIA
     Route: 048
     Dates: start: 20110503, end: 20110819
  19. ASPIRIN [Concomitant]
     Indication: CEREBRAL ISCHAEMIA
     Route: 048
     Dates: start: 20110825, end: 20110828
  20. SLOW K [Concomitant]
     Indication: HYPOKALAEMIA
     Route: 048
     Dates: start: 20110821, end: 20110829
  21. SLOW K [Concomitant]
     Indication: HYPOKALAEMIA
     Route: 048
     Dates: start: 20110809, end: 20110816
  22. SLOW K [Concomitant]
     Indication: HYPOKALAEMIA
     Route: 048
     Dates: start: 20110819, end: 20110820
  23. NAPROSYN [Concomitant]
     Indication: ARTHRALGIA
     Route: 048
     Dates: start: 20110820
  24. VITAMIN B12 [Concomitant]
     Indication: NUTRITIONAL SUPPLEMENTATION
     Route: 048
     Dates: start: 20110822, end: 20110908
  25. OXYBUTYNIN [Concomitant]
     Indication: URINARY INCONTINENCE
     Route: 048
     Dates: start: 20110823

REACTIONS (2)
  - Cerebral ischaemia [Recovered/Resolved]
  - Cerebral ischaemia [Recovered/Resolved]
